FAERS Safety Report 14153236 (Version 1)
Quarter: 2017Q4

REPORT INFORMATION
  Report Type: Spontaneous
  Country: TW (occurrence: TW)
  Receive Date: 20171102
  Receipt Date: 20171102
  Transmission Date: 20180321
  Serious: Yes (Other)
  Sender: FDA-Public Use
  Company Number: TW-ALLERGAN-1760502US

PATIENT
  Age: 50 Year
  Sex: Female

DRUGS (1)
  1. BOTULINUM TOXIN TYPE A UNK [Suspect]
     Active Substance: BOTULINUM TOXIN TYPE A
     Indication: BLEPHAROSPASM
     Dosage: 30 UNITS, SINGLE
     Route: 030

REACTIONS (2)
  - Optic neuropathy [Unknown]
  - Angle closure glaucoma [Unknown]
